FAERS Safety Report 9899343 (Version 2)
Quarter: 2014Q2

REPORT INFORMATION
  Report Type: Spontaneous
  Country: US (occurrence: US)
  Receive Date: 20140214
  Receipt Date: 20140418
  Transmission Date: 20141212
  Serious: No
  Sender: FDA-Public Use
  Company Number: US-009507513-1402USA007342

PATIENT
  Age: 56 Year
  Sex: Female

DRUGS (4)
  1. OXYTROL FOR WOMEN [Suspect]
     Indication: HYPERTONIC BLADDER
     Dosage: UNK, UNKNOWN
     Route: 062
     Dates: start: 201402, end: 20140220
  2. OXYTROL FOR WOMEN [Suspect]
     Indication: URINARY INCONTINENCE
  3. XANAX [Concomitant]
     Indication: PRODUCT USED FOR UNKNOWN INDICATION
     Dosage: 1 MG, UNKNOWN
  4. DETROL [Concomitant]
     Indication: PRODUCT USED FOR UNKNOWN INDICATION
     Dosage: 4 MG, UNKNOWN

REACTIONS (3)
  - Scar [Not Recovered/Not Resolved]
  - Skin discolouration [Not Recovered/Not Resolved]
  - Inappropriate schedule of drug administration [Unknown]
